FAERS Safety Report 24257611 (Version 5)
Quarter: 2025Q3

REPORT INFORMATION
  Report Type: Report from Study
  Country: CA (occurrence: CA)
  Receive Date: 20240828
  Receipt Date: 20250715
  Transmission Date: 20251021
  Serious: Yes (Life-Threatening, Other)
  Sender: JOHNSON AND JOHNSON
  Company Number: CA-JNJFOC-20240859091

PATIENT
  Age: 64 Year
  Sex: Female
  Weight: 96 kg

DRUGS (6)
  1. SIMPONI [Suspect]
     Active Substance: GOLIMUMAB
     Indication: Pyoderma gangrenosum
     Route: 058
     Dates: start: 20250409, end: 20250604
  2. SIMPONI [Suspect]
     Active Substance: GOLIMUMAB
     Indication: Erythema nodosum
     Route: 058
     Dates: end: 20250604
  3. SIMPONI [Suspect]
     Active Substance: GOLIMUMAB
     Indication: Panniculitis
  4. SIMPONI [Suspect]
     Active Substance: GOLIMUMAB
     Indication: Pyoderma gangrenosum
     Route: 042
     Dates: start: 20240729, end: 20240821
  5. SIMPONI [Suspect]
     Active Substance: GOLIMUMAB
     Indication: Erythema nodosum
  6. SIMPONI [Suspect]
     Active Substance: GOLIMUMAB
     Indication: Panniculitis

REACTIONS (1)
  - Lung neoplasm malignant [Not Recovered/Not Resolved]
